FAERS Safety Report 5420637-0 (Version None)
Quarter: 2007Q3

REPORT INFORMATION
  Report Type: 
  Country: None (occurrence: None)
  Receive Date: 20070818
  Receipt Date: 20070807
  Transmission Date: 20080115
  Serious: Yes (Life-Threatening, Hospitalization)
  Sender: FDA-Public Use
  Company Number: 20074015

PATIENT
  Sex: Female

DRUGS (1)
  1. LIORESAL [Suspect]
     Indication: MUSCLE SPASTICITY
     Dosage: 80 MCG, DAILY, INTRATHECAL
     Route: 037

REACTIONS (5)
  - DRUG WITHDRAWAL SYNDROME [None]
  - MENTAL STATUS CHANGES [None]
  - MUSCLE SPASMS [None]
  - OVERDOSE [None]
  - PYREXIA [None]
